FAERS Safety Report 7010317-2 (Version None)
Quarter: 2010Q3

REPORT INFORMATION
  Report Type: 
  Country: None (occurrence: None)
  Receive Date: 20100923
  Receipt Date: 20100914
  Transmission Date: 20110219
  Serious: Yes (Other)
  Sender: FDA-Public Use
  Company Number: B0669906A

PATIENT
  Sex: Female

DRUGS (2)
  1. SERETIDE [Suspect]
     Indication: PRODUCT USED FOR UNKNOWN INDICATION
     Dosage: 1PUFF TWICE PER DAY
     Route: 055
  2. SERETIDE [Suspect]
     Dosage: 1PUFF TWICE PER DAY
     Route: 055

REACTIONS (5)
  - DEVICE FAILURE [None]
  - DYSPNOEA [None]
  - INTENTIONAL OVERDOSE [None]
  - PRODUCT QUALITY ISSUE [None]
  - SPUTUM RETENTION [None]
